FAERS Safety Report 16804472 (Version 3)
Quarter: 2019Q4

REPORT INFORMATION
  Report Type: Spontaneous
  Country: US (occurrence: US)
  Receive Date: 20190913
  Receipt Date: 20191129
  Transmission Date: 20200122
  Serious: Yes (Other)
  Sender: FDA-Public Use
  Company Number: US-PFIZER INC-2019393171

PATIENT
  Age: 54 Year
  Sex: Female
  Weight: 63.49 kg

DRUGS (4)
  1. IBRANCE [Suspect]
     Active Substance: PALBOCICLIB
     Dosage: 75 MG, CYCLIC: 1XDAY-28 DAYS
     Route: 048
     Dates: start: 201907, end: 20190909
  2. FASLODEX [Suspect]
     Active Substance: FULVESTRANT
     Indication: BREAST CANCER METASTATIC
     Dosage: 2 SHOTS EVERY 28 DAYS
     Dates: start: 201902, end: 20190909
  3. IBRANCE [Suspect]
     Active Substance: PALBOCICLIB
     Indication: BREAST CANCER METASTATIC
     Dosage: 125 MG, CYCLIC: 1XDAY-28 DAYS
     Dates: start: 20190228, end: 201903
  4. IBRANCE [Suspect]
     Active Substance: PALBOCICLIB
     Dosage: 100 MG, CYCLIC: 1XDAY-28 DAYS
     Dates: start: 201904, end: 201906

REACTIONS (11)
  - Burning sensation [Unknown]
  - White blood cell count decreased [Unknown]
  - Malaise [Unknown]
  - Red blood cell count decreased [Unknown]
  - Eye swelling [Unknown]
  - Capillary disorder [Unknown]
  - Neoplasm progression [Unknown]
  - Fatigue [Unknown]
  - Neoplasm recurrence [Unknown]
  - Neuropathy peripheral [Unknown]
  - Autoimmune disorder [Unknown]

NARRATIVE: CASE EVENT DATE: 2019
